FAERS Safety Report 20701045 (Version 4)
Quarter: 2022Q4

REPORT INFORMATION
  Report Type: Report from Study
  Country: US (occurrence: US)
  Receive Date: 20220412
  Receipt Date: 20221208
  Transmission Date: 20230112
  Serious: Yes (Other)
  Sender: FDA-Public Use
  Company Number: US-OTSUKA-2022_000193

PATIENT
  Sex: Female

DRUGS (2)
  1. CEDAZURIDINE\DECITABINE [Suspect]
     Active Substance: CEDAZURIDINE\DECITABINE
     Indication: Myelodysplastic syndrome
     Dosage: 1 DF (35 MG DECITABINE AND 100 MG CEDAZURIDINE), QD 1-5 DAYS EVERY 28 DAY CYCLE
     Route: 048
     Dates: start: 20210310
  2. IMBRUVICA [Concomitant]
     Active Substance: IBRUTINIB
     Indication: Product used for unknown indication
     Dosage: UNK
     Route: 065

REACTIONS (6)
  - Urinary tract infection [Unknown]
  - White blood cell count decreased [Unknown]
  - Influenza [Unknown]
  - Illness [Unknown]
  - Constipation [Recovering/Resolving]
  - White blood cell count decreased [Recovered/Resolved]
